FAERS Safety Report 17794173 (Version 1)
Quarter: 2020Q2

REPORT INFORMATION
  Report Type: Spontaneous
  Country: US (occurrence: US)
  Receive Date: 20200515
  Receipt Date: 20200515
  Transmission Date: 20200714
  Serious: No
  Sender: FDA-Public Use
  Company Number: US-TEVA-2020-US-1235738

PATIENT
  Sex: Female

DRUGS (1)
  1. BUDESONIDE. [Suspect]
     Active Substance: BUDESONIDE
     Dosage: BUDESONIDE,0.5 MG / 2 ML?FORM OF ADMIN: INHALATION SUSPENSION
     Route: 065

REACTIONS (3)
  - Chest pain [Unknown]
  - Product physical consistency issue [Unknown]
  - Drug ineffective [Unknown]
